FAERS Safety Report 17332430 (Version 2)
Quarter: 2021Q1

REPORT INFORMATION
  Report Type: Spontaneous
  Country: US (occurrence: US)
  Receive Date: 20200128
  Receipt Date: 20210223
  Transmission Date: 20210419
  Serious: No
  Sender: FDA-Public Use
  Company Number: US-BRISTOL-MYERS SQUIBB COMPANY-BMS-2020-007033

PATIENT
  Age: 57 Year
  Sex: Female

DRUGS (1)
  1. SPRYCEL [Suspect]
     Active Substance: DASATINIB
     Indication: MYELOFIBROSIS
     Dosage: 100 MILLIGRAM DAILY
     Route: 048
     Dates: start: 20190729

REACTIONS (4)
  - Intentional product use issue [Unknown]
  - Abdominal distension [Unknown]
  - Flatulence [Unknown]
  - Decreased appetite [Unknown]

NARRATIVE: CASE EVENT DATE: 202001
